FAERS Safety Report 5221646-7 (Version None)
Quarter: 2007Q1

REPORT INFORMATION
  Report Type: 
  Country: None (occurrence: None)
  Receive Date: 20070126
  Receipt Date: 20070126
  Transmission Date: 20070707
  Serious: Yes (Hospitalization)
  Sender: FDA-Public Use
  Company Number: None

PATIENT
  Sex: Female
  Weight: 70 kg

DRUGS (4)
  1. BUSULFAN [Suspect]
     Dosage: 1120 MG
  2. CYCLOPHOSPHAMIDE [Suspect]
     Dosage: 7800 MG
  3. CYTARABINE [Suspect]
     Dosage: 1260 MG
  4. DAUNORUBICIN HCL [Suspect]
     Dosage: 240 MG

REACTIONS (1)
  - PULMONARY HAEMORRHAGE [None]
